FAERS Safety Report 4451259-6 (Version None)
Quarter: 2004Q3

REPORT INFORMATION
  Report Type: 
  Country: None (occurrence: None)
  Receive Date: 20040916
  Receipt Date: 20040728
  Transmission Date: 20050211
  Serious: Yes (Hospitalization)
  Sender: FDA-Public Use
  Company Number: GB-BRISTOL-MYERS SQUIBB COMPANY-12653192

PATIENT
  Age: 78 Year
  Sex: Male

DRUGS (6)
  1. PACLITAXEL [Suspect]
     Indication: BLADDER CANCER
     Dates: start: 20040618, end: 20040618
  2. CISPLATIN [Suspect]
     Indication: BLADDER CANCER
     Dates: start: 20040618, end: 20040618
  3. GEMCITABINE [Suspect]
     Indication: BLADDER CANCER
     Dates: start: 20040619, end: 20040619
  4. WARFARIN SODIUM [Concomitant]
     Dates: start: 19980101
  5. PROCHLORPERAZINE [Concomitant]
     Dates: start: 19740101
  6. DIGOXIN [Concomitant]
     Route: 048

REACTIONS (1)
  - ORTHOSTATIC HYPOTENSION [None]
